FAERS Safety Report 10343977 (Version 2)
Quarter: 2014Q3

REPORT INFORMATION
  Report Type: Spontaneous
  Country: BG (occurrence: BG)
  Receive Date: 20140728
  Receipt Date: 20140728
  Transmission Date: 20150326
  Serious: Yes (Hospitalization, Other)
  Sender: FDA-Public Use
  Company Number: BG-AMGEN-BGRSP2014043717

PATIENT
  Age: 56 Year
  Sex: Female
  Weight: 54 kg

DRUGS (3)
  1. L-THYROXIN [Concomitant]
     Active Substance: LEVOTHYROXINE SODIUM
     Indication: THYROID DISORDER
  2. PROLIA [Suspect]
     Active Substance: DENOSUMAB
     Indication: OSTEOPOROSIS POSTMENOPAUSAL
     Dosage: UNK, (FREQ. 1 UNSPECIFIED UNIT)
     Route: 058
     Dates: start: 20140514
  3. VIGANTOL                           /00318501/ [Concomitant]
     Indication: THYROID DISORDER

REACTIONS (3)
  - Oedema [Unknown]
  - Acute generalised exanthematous pustulosis [Unknown]
  - Urticaria [Unknown]

NARRATIVE: CASE EVENT DATE: 2014
